FAERS Safety Report 7598281-9 (Version None)
Quarter: 2011Q3

REPORT INFORMATION
  Report Type: 
  Country: None (occurrence: None)
  Receive Date: 20110708
  Receipt Date: 20110625
  Transmission Date: 20111222
  Serious: Yes (Hospitalization, Other)
  Sender: FDA-Public Use
  Company Number: IN-PAR PHARMACEUTICAL, INC-2011SCPR003089

PATIENT

DRUGS (2)
  1. VERAPAMIL EXTENDED-RELEASE [Suspect]
     Indication: PRODUCT USED FOR UNKNOWN INDICATION
     Dosage: 30 DF, SINGLE
     Route: 048
  2. METOPROLOL TARTRATE [Suspect]
     Indication: PRODUCT USED FOR UNKNOWN INDICATION
     Dosage: 35 DF, SINGLE
     Route: 048

REACTIONS (4)
  - INTENTIONAL OVERDOSE [None]
  - SUICIDE ATTEMPT [None]
  - OPTIC ISCHAEMIC NEUROPATHY [None]
  - HAEMODYNAMIC INSTABILITY [None]
